FAERS Safety Report 4705870-5 (Version None)
Quarter: 2005Q2

REPORT INFORMATION
  Report Type: 
  Country: None (occurrence: None)
  Receive Date: 20050629
  Receipt Date: 20050404
  Transmission Date: 20051028
  Serious: Yes (Hospitalization)
  Sender: FDA-Public Use
  Company Number: 05P-163-0296148-00

PATIENT
  Age: 69 Year
  Sex: Female
  Weight: 68.0396 kg

DRUGS (9)
  1. HUMIRA [Suspect]
     Indication: RHEUMATOID ARTHRITIS
     Dosage: 40 MG, 1 IN 1 WK, SUBCUTANEOUS
     Route: 058
     Dates: start: 20030101, end: 20030101
  2. HUMIRA [Suspect]
     Indication: RHEUMATOID ARTHRITIS
     Dosage: 40 MG, 1 IN 1 WK, SUBCUTANEOUS
     Route: 058
     Dates: start: 20040101
  3. METHOTREXATE [Concomitant]
  4. VERAPAMIL HYDROCHLORIDE [Concomitant]
  5. CELECOXIB [Concomitant]
  6. RALOXIFENE HYDROCHLORIDE [Concomitant]
  7. BEL TABS [Concomitant]
  8. ASPIRIN [Concomitant]
  9. STELEZINE [Concomitant]

REACTIONS (3)
  - FALL [None]
  - GANGRENE [None]
  - NASOPHARYNGITIS [None]
